FAERS Safety Report 24581190 (Version 1)
Quarter: 2024Q4

REPORT INFORMATION
  Report Type: Spontaneous
  Country: US (occurrence: US)
  Receive Date: 20241105
  Receipt Date: 20241105
  Transmission Date: 20250115
  Serious: No
  Sender: GLENMARK
  Company Number: US-GLENMARK PHARMACEUTICALS-2024GMK089782

PATIENT

DRUGS (2)
  1. DICLOFENAC SODIUM [Suspect]
     Active Substance: DICLOFENAC SODIUM
     Indication: Failed back surgery syndrome
     Dosage: UNK, EVERY DAY
     Route: 065
     Dates: start: 2020
  2. DICLOFENAC SODIUM [Suspect]
     Active Substance: DICLOFENAC SODIUM
     Indication: Failed back surgery syndrome
     Dosage: UNK, EVERY DAY
     Route: 065
     Dates: start: 2008

REACTIONS (2)
  - Product use issue [Unknown]
  - Drug effective for unapproved indication [Unknown]
